FAERS Safety Report 10053803 (Version 1)
Quarter: 2014Q2

REPORT INFORMATION
  Report Type: Spontaneous
  Country: NO (occurrence: NO)
  Receive Date: 20140402
  Receipt Date: 20140402
  Transmission Date: 20141212
  Serious: Yes (Life-Threatening)
  Sender: FDA-Public Use
  Company Number: NO-ACTAVIS-2014-05944

PATIENT
  Age: 68 Year
  Sex: Male
  Weight: 58 kg

DRUGS (2)
  1. GEMCITABINE (UNKNOWN) [Suspect]
     Indication: PANCREATIC CARCINOMA
     Dosage: 1000 MG/M2, UNK;  DAY 1 AND 8, EVERY 3 WEEK
     Route: 051
     Dates: start: 20131212, end: 20140211
  2. CAPECITABINE [Concomitant]
     Indication: PANCREATIC CARCINOMA
     Dosage: 1500 MG, UNK X2 IN 3 AV 4 WEEKS
     Route: 065
     Dates: start: 20131212, end: 20140304

REACTIONS (1)
  - Cerebral infarction [Recovering/Resolving]
